FAERS Safety Report 5806066-6 (Version None)
Quarter: 2008Q3

REPORT INFORMATION
  Report Type: 
  Country: None (occurrence: None)
  Receive Date: 20080709
  Receipt Date: 20080709
  Transmission Date: 20090109
  Serious: No
  Sender: FDA-Public Use
  Company Number: None

PATIENT
  Age: 75 Year
  Sex: Male

DRUGS (1)
  1. CLOPIDOGREL [Suspect]
     Indication: TRANSIENT ISCHAEMIC ATTACK
     Dosage: 75 MG EVERY DAY PO
     Route: 048
     Dates: start: 20080117, end: 20080615

REACTIONS (4)
  - DIZZINESS [None]
  - DUODENAL ULCER HAEMORRHAGE [None]
  - HELICOBACTER INFECTION [None]
  - RECTAL HAEMORRHAGE [None]
